FAERS Safety Report 15242784 (Version 2)
Quarter: 2018Q4

REPORT INFORMATION
  Report Type: Spontaneous
  Country: US (occurrence: US)
  Receive Date: 20180806
  Receipt Date: 20181011
  Transmission Date: 20190204
  Serious: No
  Sender: FDA-Public Use
  Company Number: US-ASTRAZENECA-2018SE96221

PATIENT
  Sex: Male
  Weight: 106.6 kg

DRUGS (11)
  1. HYDROXYZINE [Concomitant]
     Active Substance: HYDROXYZINE HYDROCHLORIDE
  2. FLUTICASONE. [Concomitant]
     Active Substance: FLUTICASONE
  3. SINGULAIR [Concomitant]
     Active Substance: MONTELUKAST SODIUM
  4. SPIRIVA RESPIMAT [Concomitant]
     Active Substance: TIOTROPIUM BROMIDE
  5. FASENRA [Suspect]
     Active Substance: BENRALIZUMAB
     Indication: ASTHMA
     Dosage: EVERY FOUR WEEKS
     Route: 058
     Dates: start: 201806
  6. ALBUTEROL. [Concomitant]
     Active Substance: ALBUTEROL
  7. BUDESONIDE. [Concomitant]
     Active Substance: BUDESONIDE
  8. HYDROXYZINE [Concomitant]
     Active Substance: HYDROXYZINE HYDROCHLORIDE
  9. ALBUTEROL SULFATE. [Concomitant]
     Active Substance: ALBUTEROL SULFATE
  10. PREDNISOLONE. [Concomitant]
     Active Substance: PREDNISOLONE
  11. SYMBICORT [Suspect]
     Active Substance: BUDESONIDE\FORMOTEROL FUMARATE DIHYDRATE
     Indication: ASTHMA
     Dosage: 160/4.5MCG 2 PUFFS 2 TIMES A DAY
     Route: 055
     Dates: start: 201803

REACTIONS (7)
  - Malaise [Unknown]
  - Dyspnoea [Not Recovered/Not Resolved]
  - Wheezing [Not Recovered/Not Resolved]
  - Asthma [Unknown]
  - Drug ineffective [Unknown]
  - Drug effect delayed [Recovered/Resolved]
  - Eosinophil count decreased [Unknown]
